FAERS Safety Report 4515839-1 (Version None)
Quarter: 2004Q4

REPORT INFORMATION
  Report Type: 
  Country: None (occurrence: None)
  Receive Date: 20041001
  Receipt Date: 20040204
  Transmission Date: 20050328
  Serious: Yes (Hospitalization)
  Sender: FDA-Public Use
  Company Number: TPA2004A00133

PATIENT
  Age: 3 Decade
  Sex: Female

DRUGS (1)
  1. ACTOS [Suspect]
     Dosage: ONCE, PER ORAL
     Route: 048
     Dates: start: 20040201, end: 20040201

REACTIONS (1)
  - BLOOD GLUCOSE DECREASED [None]
